FAERS Safety Report 24698543 (Version 2)
Quarter: 2024Q4

REPORT INFORMATION
  Report Type: Report from Study
  Country: GR (occurrence: GR)
  Receive Date: 20241204
  Receipt Date: 20241207
  Transmission Date: 20250115
  Serious: Yes (Hospitalization)
  Sender: ABBVIE
  Company Number: GR-ABBVIE-6027281

PATIENT
  Age: 81 Year
  Sex: Female
  Weight: 51 kg

DRUGS (3)
  1. CARBIDOPA\LEVODOPA [Suspect]
     Active Substance: CARBIDOPA\LEVODOPA
     Indication: Parkinson^s disease
     Dosage: MORNING DOSE: 9.5ML; CONTINUOUS RATE: 2.7ML/H; EXTRA DOSE: 1.0ML
     Route: 050
     Dates: start: 20210125
  2. CARBIDOPA\LEVODOPA [Suspect]
     Active Substance: CARBIDOPA\LEVODOPA
     Dosage: MORNING DOSE: 9.5ML; CONTINUOUS RATE: 2.7ML/H; EXTRA DOSE: 1.0ML
     Route: 050
  3. CARBIDOPA\LEVODOPA [Suspect]
     Active Substance: CARBIDOPA\LEVODOPA
     Dosage: MORNING DOSE: 9.0ML; CONTINUOUS RATE: 2.5ML/H; EXTRA DOSE: 1.0ML
     Route: 050

REACTIONS (1)
  - Aspiration [Recovering/Resolving]
